FAERS Safety Report 6557247-8 (Version None)
Quarter: 2010Q1

REPORT INFORMATION
  Report Type: 
  Country: None (occurrence: None)
  Receive Date: 20100129
  Receipt Date: 20100121
  Transmission Date: 20100710
  Serious: Yes (Hospitalization, Other)
  Sender: FDA-Public Use
  Company Number: US-BIOGENIDEC-2009BI034473

PATIENT
  Age: 51 Year
  Sex: Female
  Weight: 88 kg

DRUGS (1)
  1. TYSABRI [Suspect]
     Indication: MULTIPLE SCLEROSIS
     Route: 042
     Dates: start: 20080513, end: 20090915

REACTIONS (6)
  - CELLULITIS [None]
  - DRUG ERUPTION [None]
  - LYMPHADENOPATHY [None]
  - METASTASES TO LIVER [None]
  - SKIN CANCER [None]
  - VULVAL CANCER METASTATIC [None]
